FAERS Safety Report 9659482 (Version 2)
Quarter: 2013Q4

REPORT INFORMATION
  Report Type: Spontaneous
  Country: US (occurrence: US)
  Receive Date: 20131031
  Receipt Date: 20131031
  Transmission Date: 20140711
  Serious: Yes (Disabling)
  Sender: FDA-Public Use
  Company Number: PHEH2013US021333

PATIENT
  Age: 53 Year
  Sex: Male
  Weight: 72 kg

DRUGS (6)
  1. GLEEVEC [Suspect]
     Indication: CHRONIC MYELOID LEUKAEMIA
     Dosage: 400 MG, ONCE DAILY
     Route: 048
     Dates: start: 20131009, end: 20131009
  2. GLEEVEC [Suspect]
     Indication: CHRONIC LYMPHOCYTIC LEUKAEMIA
     Dosage: 400 MG, DAILY
     Route: 048
     Dates: start: 20080917, end: 20131009
  3. B 12 [Concomitant]
     Dosage: 1000 MG, DAILY
     Route: 048
     Dates: start: 20130528
  4. METOPROLOL TARTRATE [Concomitant]
     Dosage: 50 MG, BID
     Route: 048
     Dates: start: 20110329
  5. OMEPRAZOLE [Concomitant]
     Indication: GASTRIC ULCER
     Dosage: 40 MG, BID
     Route: 048
     Dates: start: 20130128
  6. ALLERGY RELIEF [Concomitant]
     Dosage: 10 MG, (ALL DAY) DAILY
     Route: 048
     Dates: start: 20110328

REACTIONS (4)
  - Amnesia [Unknown]
  - Memory impairment [Unknown]
  - Aphasia [Unknown]
  - Impaired reasoning [Unknown]
